FAERS Safety Report 5628870-X (Version None)
Quarter: 2008Q1

REPORT INFORMATION
  Report Type: 
  Country: None (occurrence: None)
  Receive Date: 20080215
  Receipt Date: 20080206
  Transmission Date: 20080703
  Serious: Yes (Other)
  Sender: FDA-Public Use
  Company Number: US-PFIZER INC-2008013160

PATIENT
  Sex: Female
  Weight: 49.9 kg

DRUGS (3)
  1. CHANTIX [Suspect]
     Indication: SMOKING CESSATION THERAPY
  2. TOPROL [Concomitant]
  3. LOTREL [Concomitant]

REACTIONS (6)
  - ACCIDENT AT HOME [None]
  - EPISTAXIS [None]
  - INTENTIONAL DRUG MISUSE [None]
  - LOSS OF CONSCIOUSNESS [None]
  - NAUSEA [None]
  - WEIGHT INCREASED [None]
